FAERS Safety Report 8079369-5 (Version None)
Quarter: 2012Q1

REPORT INFORMATION
  Report Type: 
  Country: None (occurrence: None)
  Receive Date: 20120128
  Receipt Date: 20110822
  Transmission Date: 20120608
  Serious: No
  Sender: FDA-Public Use
  Company Number: US-ABBOTT-11P-163-0848527-00

PATIENT
  Age: 49 Year
  Sex: Female

DRUGS (15)
  1. METFFORMIN HYDROCHLORIDE [Concomitant]
     Indication: DIABETES MELLITUS
  2. LIDOCAINE [Concomitant]
     Indication: PRODUCT USED FOR UNKNOWN INDICATION
     Dosage: PATCH DAILY TO KNEES, SHOULDERS AND BACK
  3. LEFLUNOMIDE [Concomitant]
     Indication: RHEUMATOID ARTHRITIS
     Dosage: DAILY
  4. CYMBALTA [Concomitant]
     Indication: FIBROMYALGIA
  5. FLEXERIL [Concomitant]
     Indication: PAIN
  6. ADVAIR DISKUS 100/50 [Concomitant]
     Indication: ASTHMA
     Dosage: DAILY
  7. CYMBALTA [Concomitant]
     Indication: PAIN
  8. PAXIL [Concomitant]
     Indication: ANXIETY
     Dosage: DAILY
  9. ALBUTEROL [Concomitant]
     Indication: ASTHMA
     Dosage: BREATHING MACHINE
  10. HYDROCODONE BITARTRATE [Concomitant]
     Indication: PAIN
     Dosage: 10-500MG 3-4 TIMES DAILY
  11. HUMIRA [Suspect]
     Indication: RHEUMATOID ARTHRITIS
     Dates: start: 20110705
  12. SYNTHROID [Concomitant]
     Indication: THYROID DISORDER
  13. NABUMETONE [Concomitant]
     Indication: INFLAMMATION
  14. NEXIUM [Concomitant]
     Indication: ULCER
     Dosage: DAILY
  15. PROMETHAZINE [Concomitant]
     Indication: NAUSEA
     Dosage: AS REQUIRED

REACTIONS (3)
  - LACERATION [None]
  - BLOOD CHOLESTEROL INCREASED [None]
  - SCAR [None]
